FAERS Safety Report 5037383-8 (Version None)
Quarter: 2006Q2

REPORT INFORMATION
  Report Type: 
  Country: None (occurrence: None)
  Receive Date: 20060531
  Receipt Date: 20060228
  Transmission Date: 20061013
  Serious: Yes (Other)
  Sender: FDA-Public Use
  Company Number: 006730

PATIENT
  Sex: Female

DRUGS (1)
  1. MIRCETTE(DESOGESTREL, ETHINYLESTRADIOL) TABLET, 0.15/0.02MG [Suspect]
     Dosage: ORAL
     Route: 048

REACTIONS (1)
  - BLINDNESS [None]
